FAERS Safety Report 21728022 (Version 1)
Quarter: 2022Q4

REPORT INFORMATION
  Report Type: Spontaneous
  Country: RU (occurrence: RU)
  Receive Date: 20221214
  Receipt Date: 20221214
  Transmission Date: 20230113
  Serious: Yes (Hospitalization, Other)
  Sender: FDA-Public Use
  Company Number: RU-FreseniusKabi-FK202217604

PATIENT
  Sex: Male

DRUGS (6)
  1. CARBOPLATIN [Suspect]
     Active Substance: CARBOPLATIN
     Indication: Immunochemotherapy
     Dosage: 4 COURSES
     Dates: start: 20191008, end: 20191210
  2. PACLITAXEL [Suspect]
     Active Substance: PACLITAXEL
     Indication: Immunochemotherapy
     Dosage: 4 COURSES
     Dates: start: 20191008, end: 20191210
  3. PEMBROLIZUMAB [Suspect]
     Active Substance: PEMBROLIZUMAB
     Indication: Immunochemotherapy
     Dosage: 4 COURSES
     Route: 042
     Dates: start: 20191008, end: 20191210
  4. PEMBROLIZUMAB [Suspect]
     Active Substance: PEMBROLIZUMAB
     Route: 042
     Dates: start: 20191230
  5. PEMBROLIZUMAB [Suspect]
     Active Substance: PEMBROLIZUMAB
  6. DOCETAXEL [Concomitant]
     Active Substance: DOCETAXEL
     Indication: Immunochemotherapy

REACTIONS (1)
  - Immune-mediated hepatitis [Unknown]

NARRATIVE: CASE EVENT DATE: 20200210
